FAERS Safety Report 11198455 (Version 1)
Quarter: 2015Q2

REPORT INFORMATION
  Report Type: Spontaneous
  Country: GB (occurrence: GB)
  Receive Date: 20150618
  Receipt Date: 20150618
  Transmission Date: 20150821
  Serious: Yes (Other)
  Sender: FDA-Public Use
  Company Number: GB-ROCHE-1546064

PATIENT
  Sex: Female

DRUGS (1)
  1. HERCEPTIN [Suspect]
     Active Substance: TRASTUZUMAB
     Indication: PRODUCT USED FOR UNKNOWN INDICATION
     Dosage: CYCLE 16
     Route: 058

REACTIONS (8)
  - Urinary tract infection [Unknown]
  - Pruritus [Unknown]
  - Musculoskeletal pain [Unknown]
  - Dry skin [Unknown]
  - Pruritus generalised [Not Recovered/Not Resolved]
  - Insomnia [Unknown]
  - Heart rate decreased [Unknown]
  - Lower respiratory tract infection [Unknown]
